FAERS Safety Report 9272136 (Version 1)
Quarter: 2013Q2

REPORT INFORMATION
  Report Type: Report from Study
  Country: US (occurrence: US)
  Receive Date: 20130506
  Receipt Date: 20130506
  Transmission Date: 20140414
  Serious: Yes (Death, Hospitalization)
  Sender: FDA-Public Use
  Company Number: US-GLAXOSMITHKLINE-A1021894A

PATIENT
  Age: 71 Year
  Sex: Male

DRUGS (2)
  1. OFATUMUMAB [Suspect]
     Indication: CHRONIC LYMPHOCYTIC LEUKAEMIA
     Dosage: 2000MG WEEKLY
     Route: 042
     Dates: start: 20130405, end: 20130419
  2. METHYLPREDNISOLONE [Suspect]
     Indication: CHRONIC LYMPHOCYTIC LEUKAEMIA
     Dosage: 1GM2 WEEKLY
     Dates: start: 20130405, end: 20130419

REACTIONS (4)
  - Pneumonia [Fatal]
  - Pyrexia [Unknown]
  - Haemorrhage [Unknown]
  - Thrombocytopenia [Unknown]
